FAERS Safety Report 24769606 (Version 1)
Quarter: 2024Q4

REPORT INFORMATION
  Report Type: Spontaneous
  Country: US (occurrence: None)
  Receive Date: 20241223
  Receipt Date: 20241223
  Transmission Date: 20250115
  Serious: Yes (Death)
  Sender: Public
  Company Number: None

PATIENT
  Age: 76 Year
  Sex: Female

DRUGS (11)
  1. NUCALA [Suspect]
     Active Substance: MEPOLIZUMAB
     Indication: Asthma
     Route: 058
     Dates: start: 20240828, end: 20241201
  2. MIDODRINE [Concomitant]
     Active Substance: MIDODRINE
  3. LEVOTHYROXINE [Concomitant]
     Active Substance: LEVOTHYROXINE
  4. ELIQUIS [Concomitant]
     Active Substance: APIXABAN
  5. POTASSIUM CHLORIDE [Concomitant]
     Active Substance: POTASSIUM CHLORIDE
  6. FUROSEMIDE [Concomitant]
     Active Substance: FUROSEMIDE
  7. PANTOPRAZOLE [Concomitant]
     Active Substance: PANTOPRAZOLE
  8. wixela inhub diskus [Concomitant]
  9. SPIRONOLACTONE [Concomitant]
     Active Substance: SPIRONOLACTONE
  10. FLUCONAZOLE [Concomitant]
     Active Substance: FLUCONAZOLE
  11. CEPHALEXIN [Concomitant]
     Active Substance: CEPHALEXIN

REACTIONS (1)
  - Death [None]

NARRATIVE: CASE EVENT DATE: 20241223
